FAERS Safety Report 18987962 (Version 5)
Quarter: 2023Q2

REPORT INFORMATION
  Report Type: Spontaneous
  Country: US (occurrence: US)
  Receive Date: 20210309
  Receipt Date: 20230613
  Transmission Date: 20230721
  Serious: Yes (Other)
  Sender: FDA-Public Use
  Company Number: US-GILEAD-2021-0519284

PATIENT
  Sex: Female
  Weight: 61.224 kg

DRUGS (10)
  1. ATRIPLA [Suspect]
     Active Substance: EFAVIRENZ\EMTRICITABINE\TENOFOVIR DISOPROXIL FUMARATE
     Indication: HIV infection
     Dosage: UNK
     Route: 048
     Dates: start: 2009
  2. ATRIPLA [Suspect]
     Active Substance: EFAVIRENZ\EMTRICITABINE\TENOFOVIR DISOPROXIL FUMARATE
     Dosage: UNK
     Route: 048
     Dates: start: 2009, end: 2015
  3. BIKTARVY [Concomitant]
     Active Substance: BICTEGRAVIR SODIUM\EMTRICITABINE\TENOFOVIR ALAFENAMIDE FUMARATE
  4. NORVIR [Concomitant]
     Active Substance: RITONAVIR
  5. PREZISTA [Concomitant]
     Active Substance: DARUNAVIR ETHANOLATE
  6. TIVICAY [Concomitant]
     Active Substance: DOLUTEGRAVIR SODIUM
  7. ASPIRIN [Concomitant]
     Active Substance: ASPIRIN
  8. VITAMINS [Concomitant]
     Active Substance: VITAMINS
  9. NEURIVA BRAIN PERFORMANCE [Concomitant]
  10. PRAVASTATIN [Concomitant]
     Active Substance: PRAVASTATIN

REACTIONS (12)
  - Nephrectomy [Unknown]
  - Renal failure [Not Recovered/Not Resolved]
  - Anhedonia [Not Recovered/Not Resolved]
  - Emotional distress [Not Recovered/Not Resolved]
  - Anxiety [Not Recovered/Not Resolved]
  - Pain [Not Recovered/Not Resolved]
  - Gastric disorder [Unknown]
  - Fatigue [Not Recovered/Not Resolved]
  - Hypertension [Not Recovered/Not Resolved]
  - Gait disturbance [Not Recovered/Not Resolved]
  - Dysstasia [Not Recovered/Not Resolved]
  - Depression [Not Recovered/Not Resolved]

NARRATIVE: CASE EVENT DATE: 20150101
